FAERS Safety Report 7552984-0 (Version None)
Quarter: 2011Q2

REPORT INFORMATION
  Report Type: 
  Country: None (occurrence: None)
  Receive Date: 20110616
  Receipt Date: 20110601
  Transmission Date: 20111010
  Serious: Yes (Hospitalization, Other)
  Sender: FDA-Public Use
  Company Number: US-BAYER-2011-047460

PATIENT
  Age: 70 Year
  Sex: Female

DRUGS (2)
  1. BETASERON [Suspect]
     Indication: RELAPSING-REMITTING MULTIPLE SCLEROSIS
     Dosage: 2 MIU, QOD
     Dates: start: 20110519, end: 20110527
  2. ALEVE (CAPLET) [Suspect]
     Indication: PREMEDICATION
     Dosage: UNK
     Dates: end: 20110527

REACTIONS (6)
  - PALLOR [None]
  - MOBILITY DECREASED [None]
  - ASTHENIA [None]
  - DYSPNOEA [None]
  - ULCER HAEMORRHAGE [None]
  - HAEMOGLOBIN DECREASED [None]
